FAERS Safety Report 5841731-6 (Version None)
Quarter: 2008Q3

REPORT INFORMATION
  Report Type: 
  Country: None (occurrence: None)
  Receive Date: 20080811
  Receipt Date: 20080811
  Transmission Date: 20090109
  Serious: Yes (Hospitalization)
  Sender: FDA-Public Use
  Company Number: None

PATIENT
  Age: 78 Year
  Sex: Male

DRUGS (1)
  1. CALCITRIOL [Suspect]
     Indication: VITAMIN SUPPLEMENTATION
     Dosage: .25 MCG OTHER PO
     Route: 048
     Dates: start: 20080305, end: 20080412

REACTIONS (9)
  - ABDOMINAL DISTENSION [None]
  - ABDOMINAL PAIN [None]
  - ANOREXIA [None]
  - CHILLS [None]
  - DIARRHOEA [None]
  - INFECTION [None]
  - MUSCLE SPASMS [None]
  - PANCREATITIS [None]
  - VOMITING [None]
